FAERS Safety Report 9096834 (Version 2)
Quarter: 2013Q1

REPORT INFORMATION
  Report Type: Spontaneous
  Country: IT (occurrence: IT)
  Receive Date: 20130211
  Receipt Date: 20130215
  Transmission Date: 20140127
  Serious: Yes (Other)
  Sender: FDA-Public Use
  Company Number: IT-BRISTOL-MYERS SQUIBB COMPANY-17342718

PATIENT
  Age: 64 Year
  Sex: Male

DRUGS (4)
  1. COUMADIN TABS 5 MG [Suspect]
     Dosage: 1DF=1 UNIT.LAST DOSE-23JAN2013.
     Route: 048
     Dates: start: 20130101
  2. LOSARTAN POTASSIUM [Concomitant]
  3. ZYLORIC [Concomitant]
     Dosage: FORMULATION-ZYLORIC 300 MG TABS
  4. CARDURA [Concomitant]
     Dosage: FORMULATION-CARDURA 4 MG TABS

REACTIONS (2)
  - Hypertension [Recovering/Resolving]
  - Epistaxis [Recovering/Resolving]
